FAERS Safety Report 19096370 (Version 1)
Quarter: 2021Q2

REPORT INFORMATION
  Report Type: Spontaneous
  Country: US (occurrence: US)
  Receive Date: 20210405
  Receipt Date: 20210405
  Transmission Date: 20210717
  Serious: Yes (Hospitalization)
  Sender: FDA-Public Use
  Company Number: None

PATIENT
  Age: 55 Year
  Sex: Female

DRUGS (18)
  1. XALKORI [Suspect]
     Active Substance: CRIZOTINIB
     Indication: TRACHEAL CANCER
     Route: 048
     Dates: start: 20201223
  2. OLANZAPINE. [Concomitant]
     Active Substance: OLANZAPINE
  3. DULOXETINE. [Concomitant]
     Active Substance: DULOXETINE
  4. MELOXICAM. [Concomitant]
     Active Substance: MELOXICAM
  5. NITROGLYCERINE [Concomitant]
     Active Substance: NITROGLYCERIN
  6. NYSTATIN. [Concomitant]
     Active Substance: NYSTATIN
  7. SUCRALFATE. [Concomitant]
     Active Substance: SUCRALFATE
  8. PANTOPRAZOLE [Concomitant]
     Active Substance: PANTOPRAZOLE
  9. ESCITALOPRAM [Concomitant]
     Active Substance: ESCITALOPRAM OXALATE
  10. ESTRA/NORETH [Concomitant]
  11. FLUCONAZOLE. [Concomitant]
     Active Substance: FLUCONAZOLE
  12. HYDROMORPHON [Concomitant]
     Active Substance: HYDROMORPHONE
  13. SYNTHROID [Concomitant]
     Active Substance: LEVOTHYROXINE SODIUM
  14. ELIQUIS [Concomitant]
     Active Substance: APIXABAN
  15. FAMOTIDINE. [Concomitant]
     Active Substance: FAMOTIDINE
  16. HYDROCORT (HYDROCORTISONE) [Concomitant]
     Active Substance: HYDROCORTISONE
  17. MORPHINE [Concomitant]
     Active Substance: MORPHINE
  18. OXYCODONE [Concomitant]
     Active Substance: OXYCODONE

REACTIONS (1)
  - Therapy interrupted [None]

NARRATIVE: CASE EVENT DATE: 20210331
